FAERS Safety Report 25987678 (Version 3)
Quarter: 2025Q4

REPORT INFORMATION
  Report Type: Spontaneous
  Country: US (occurrence: US)
  Receive Date: 20251103
  Receipt Date: 20251231
  Transmission Date: 20260118
  Serious: No
  Sender: BAUSCH AND LOMB
  Company Number: US-BAUSCHBL-2025BNL030966

PATIENT
  Age: 78 Year
  Sex: Female

DRUGS (7)
  1. LOTEPREDNOL ETABONATE [Suspect]
     Active Substance: LOTEPREDNOL ETABONATE
     Indication: Ocular hyperaemia
     Dosage: 1 GTT BID
     Route: 047
     Dates: start: 202510
  2. LOTEPREDNOL ETABONATE [Suspect]
     Active Substance: LOTEPREDNOL ETABONATE
     Route: 047
  3. ALREX [Suspect]
     Active Substance: LOTEPREDNOL ETABONATE
     Indication: Ocular hyperaemia
     Route: 047
  4. ALREX [Suspect]
     Active Substance: LOTEPREDNOL ETABONATE
     Indication: Ocular hyperaemia
  5. LISINOPRIL [Concomitant]
     Active Substance: LISINOPRIL
     Indication: Hypertension
     Route: 048
  6. AMLODIPINE [Concomitant]
     Active Substance: AMLODIPINE BESYLATE
     Indication: Hypertension
     Route: 048
  7. COREG [Concomitant]
     Active Substance: CARVEDILOL
     Indication: Hypertension
     Route: 048

REACTIONS (5)
  - Eye pain [Not Recovered/Not Resolved]
  - Eye disorder [Not Recovered/Not Resolved]
  - Therapeutic product effect incomplete [Unknown]
  - Product availability issue [Unknown]
  - Expired product administered [Unknown]
